FAERS Safety Report 7798304-8 (Version None)
Quarter: 2011Q4

REPORT INFORMATION
  Report Type: 
  Country: None (occurrence: None)
  Receive Date: 20111005
  Receipt Date: 20110921
  Transmission Date: 20120403
  Serious: Yes (Other)
  Sender: FDA-Public Use
  Company Number: US-BAYER-2011-090202

PATIENT
  Age: 58 Year
  Sex: Female

DRUGS (4)
  1. AVELOX [Suspect]
     Indication: BRONCHITIS
     Dosage: 400 MG, ONCE
     Route: 048
     Dates: start: 20110920, end: 20110921
  2. CITALOTRAM [Concomitant]
  3. HYDROCODONE [HOMATROPINE HYDROBROMIDE,HYDROCODONE BITARTRATE] [Concomitant]
  4. CYCLOBENZATIDE [Concomitant]

REACTIONS (8)
  - PRURITUS [None]
  - HYPERSENSITIVITY [None]
  - BODY TEMPERATURE INCREASED [None]
  - ERYTHEMA [None]
  - BLOOD BLISTER [None]
  - URTICARIA [None]
  - BURNING SENSATION [None]
  - OEDEMA PERIPHERAL [None]
